FAERS Safety Report 25524988 (Version 4)
Quarter: 2025Q4

REPORT INFORMATION
  Report Type: Report from Study
  Country: JP (occurrence: JP)
  Receive Date: 20250707
  Receipt Date: 20251230
  Transmission Date: 20260118
  Serious: Yes (Hospitalization, Other)
  Sender: ALEXION PHARMACEUTICALS
  Company Number: JP-ASTRAZENECA-202504JPN026246JP

PATIENT
  Age: 5 Decade
  Sex: Female
  Weight: 65 kg

DRUGS (9)
  1. RAVULIZUMAB [Suspect]
     Active Substance: RAVULIZUMAB
     Indication: Neuromyelitis optica spectrum disorder
     Dosage: 2400 MILLIGRAM, SINGLE
     Dates: start: 20231002, end: 20231002
  2. RAVULIZUMAB [Suspect]
     Active Substance: RAVULIZUMAB
     Dosage: 3000 MILLIGRAM, Q8W
     Dates: start: 20231016, end: 20250512
  3. RAVULIZUMAB [Suspect]
     Active Substance: RAVULIZUMAB
     Dosage: 3300 MILLIGRAM, Q8W
  4. RAVULIZUMAB [Suspect]
     Active Substance: RAVULIZUMAB
     Dosage: 3300 MILLIGRAM
  5. PREDNISOLONE [Concomitant]
     Active Substance: PREDNISOLONE
     Indication: Neuromyelitis optica spectrum disorder
     Dosage: 1 MILLIGRAM, QD
     Route: 061
     Dates: start: 20230619, end: 20240527
  6. SULFAMETHOXAZOLE\TRIMETHOPRIM [Concomitant]
     Active Substance: SULFAMETHOXAZOLE\TRIMETHOPRIM
     Indication: Prophylaxis
     Dosage: 1 DOSAGE FORM, QD
     Route: 061
     Dates: start: 20190816, end: 20250706
  7. BETAHISTINE MESILATE [Concomitant]
     Active Substance: BETAHISTINE MESILATE
     Indication: Prophylaxis
     Dosage: 18 MILLIGRAM, TID
     Route: 061
     Dates: start: 20200127, end: 20250706
  8. METHYLCOBALAMIN [Concomitant]
     Active Substance: METHYLCOBALAMIN
     Indication: Prophylaxis
     Dosage: 1500 MICROGRAM, TID
     Route: 061
     Dates: start: 20190809
  9. MIROGABALIN BESYLATE [Concomitant]
     Active Substance: MIROGABALIN BESYLATE
     Indication: Prophylaxis
     Dosage: 30 MILLIGRAM, BID
     Route: 061
     Dates: start: 20210628, end: 20250706

REACTIONS (7)
  - Erythema [Not Recovered/Not Resolved]
  - Pyrexia [Not Recovered/Not Resolved]
  - Neutropenia [Recovered/Resolved]
  - Off label use [Unknown]
  - Urinary tract infection [Recovering/Resolving]
  - Erythema nodosum [Recovered/Resolved]
  - Rash [Recovered/Resolved]

NARRATIVE: CASE EVENT DATE: 20250208
